FAERS Safety Report 8327037-4 (Version None)
Quarter: 2012Q2

REPORT INFORMATION
  Report Type: 
  Country: None (occurrence: None)
  Receive Date: 20120501
  Receipt Date: 20120423
  Transmission Date: 20120825
  Serious: Yes (Other)
  Sender: FDA-Public Use
  Company Number: PHHY2012GB036028

PATIENT
  Age: 56 Year
  Sex: Male

DRUGS (1)
  1. CLOZAPINE [Suspect]
     Indication: SCHIZOPHRENIA

REACTIONS (6)
  - SUBCORNEAL PUSTULAR DERMATOSIS [None]
  - RASH MACULAR [None]
  - RASH ERYTHEMATOUS [None]
  - PARAKERATOSIS [None]
  - HYPERKERATOSIS [None]
  - DRUG ERUPTION [None]
